FAERS Safety Report 4359761-2 (Version None)
Quarter: 2004Q2

REPORT INFORMATION
  Report Type: 
  Country: None (occurrence: None)
  Receive Date: 20040518
  Receipt Date: 20040504
  Transmission Date: 20050107
  Serious: Yes (Other)
  Sender: FDA-Public Use
  Company Number: CA-JNJFOC-20040500773

PATIENT
  Sex: Male

DRUGS (1)
  1. ERGAMISOL [Suspect]
     Indication: MALIGNANT MELANOMA
     Route: 049
     Dates: start: 19931101, end: 19970101

REACTIONS (4)
  - DIZZINESS [None]
  - HEAD INJURY [None]
  - MEMORY IMPAIRMENT [None]
  - ROAD TRAFFIC ACCIDENT [None]
